FAERS Safety Report 19456612 (Version 1)
Quarter: 2021Q2

REPORT INFORMATION
  Report Type: Spontaneous
  Country: US (occurrence: US)
  Receive Date: 20210624
  Receipt Date: 20210624
  Transmission Date: 20210717
  Serious: No
  Sender: FDA-Public Use
  Company Number: None

PATIENT
  Age: 47 Year
  Sex: Male
  Weight: 76.3 kg

DRUGS (4)
  1. MIDAZOLAM. [Concomitant]
     Active Substance: MIDAZOLAM
     Dates: start: 20210612, end: 20210617
  2. LEVETIRACETAM. [Concomitant]
     Active Substance: LEVETIRACETAM
     Dates: start: 20210612, end: 20210624
  3. CLOBAZAM. [Concomitant]
     Active Substance: CLOBAZAM
     Dates: start: 20210614, end: 20210624
  4. FOSPHENYTOIN [Suspect]
     Active Substance: FOSPHENYTOIN
     Indication: STATUS EPILEPTICUS
     Route: 040
     Dates: start: 20210612, end: 20210617

REACTIONS (4)
  - Aspartate aminotransferase increased [None]
  - Alanine aminotransferase increased [None]
  - Drug level above therapeutic [None]
  - Liver injury [None]

NARRATIVE: CASE EVENT DATE: 20210617
